FAERS Safety Report 7199948-7 (Version None)
Quarter: 2010Q4

REPORT INFORMATION
  Report Type: 
  Country: None (occurrence: None)
  Receive Date: 20101228
  Receipt Date: 20101215
  Transmission Date: 20110411
  Serious: No
  Sender: FDA-Public Use
  Company Number: US-PFIZER INC-2010173168

PATIENT
  Sex: Male
  Weight: 99.8 kg

DRUGS (4)
  1. CELEBREX [Suspect]
     Indication: PAIN
     Dosage: 200 MG, 1X/DAY
     Route: 048
     Dates: start: 20101101
  2. CELEBREX [Suspect]
     Indication: MUSCULOSKELETAL PAIN
  3. NEXIUM [Concomitant]
     Dosage: UNK
  4. HYOSCYAMINE [Concomitant]
     Indication: ABDOMINAL PAIN
     Dosage: 0.125 MG, UNK

REACTIONS (6)
  - CHILLS [None]
  - DIZZINESS [None]
  - FEELING ABNORMAL [None]
  - HYPOAESTHESIA [None]
  - NASOPHARYNGITIS [None]
  - PARAESTHESIA [None]
